FAERS Safety Report 10308527 (Version 2)
Quarter: 2014Q4

REPORT INFORMATION
  Report Type: Report from Study
  Country: JP (occurrence: JP)
  Receive Date: 20140716
  Receipt Date: 20141113
  Transmission Date: 20150528
  Serious: Yes (Hospitalization, Disabling, Other)
  Sender: FDA-Public Use
  Company Number: JP-ALLERGAN-1415453US

PATIENT
  Age: 69 Year
  Sex: Female

DRUGS (16)
  1. AZOPT [Concomitant]
     Active Substance: BRINZOLAMIDE
  2. LIVALO [Concomitant]
     Active Substance: PITAVASTATIN CALCIUM
  3. EPADEL [Concomitant]
     Active Substance: ICOSAPENT
  4. DEPROMEL [Concomitant]
     Active Substance: FLUVOXAMINE
  5. BIMATOPROST 0.03% SOL-EYE (9106X) [Suspect]
     Active Substance: BIMATOPROST
     Indication: EXFOLIATION GLAUCOMA
     Dosage: 1 GTT, QD
     Route: 047
     Dates: start: 20110311, end: 20110630
  6. RYSMON [Concomitant]
  7. MICARDIS [Concomitant]
     Active Substance: TELMISARTAN
  8. BIMATOPROST 0.03% SOL-EYE (9106X) [Suspect]
     Active Substance: BIMATOPROST
     Indication: OPEN ANGLE GLAUCOMA
     Dosage: 1 GTT, QD
     Route: 047
     Dates: start: 20111220
  9. MYSLEE [Concomitant]
     Active Substance: ZOLPIDEM TARTRATE
  10. BAYASPIRIN [Concomitant]
     Active Substance: ASPIRIN
  11. PLAVIX [Concomitant]
     Active Substance: CLOPIDOGREL BISULFATE
  12. MEVALOTIN [Concomitant]
     Active Substance: PRAVASTATIN SODIUM
  13. TAKEPRON [Concomitant]
     Active Substance: LANSOPRAZOLE
  14. XYZAL [Concomitant]
     Active Substance: LEVOCETIRIZINE DIHYDROCHLORIDE
  15. RIZE [Concomitant]
     Active Substance: CLOTIAZEPAM
  16. CALBLOCK [Concomitant]
     Active Substance: AZELNIDIPINE

REACTIONS (6)
  - Visual field defect [Recovering/Resolving]
  - Hypertrichosis [Unknown]
  - Growth of eyelashes [Unknown]
  - Punctate keratitis [Unknown]
  - Cerebral infarction [Not Recovered/Not Resolved]
  - Blepharal pigmentation [Unknown]

NARRATIVE: CASE EVENT DATE: 20110521
